FAERS Safety Report 24311038 (Version 1)
Quarter: 2024Q3

REPORT INFORMATION
  Report Type: Spontaneous
  Country: GB (occurrence: GB)
  Receive Date: 20240912
  Receipt Date: 20240912
  Transmission Date: 20241016
  Serious: Yes (Congenital Anomaly, Other)
  Sender: ALKEM
  Company Number: None

PATIENT
  Sex: Male

DRUGS (1)
  1. QUETIAPINE FUMARATE [Suspect]
     Active Substance: QUETIAPINE FUMARATE
     Indication: Product used for unknown indication
     Dosage: UNK
     Route: 065

REACTIONS (9)
  - Developmental delay [Not Recovered/Not Resolved]
  - Hypoacusis [Not Recovered/Not Resolved]
  - Motor developmental delay [Unknown]
  - Speech disorder developmental [Unknown]
  - Learning disorder [Unknown]
  - Ataxia [Unknown]
  - Emotional disorder [Unknown]
  - Social (pragmatic) communication disorder [Unknown]
  - Behaviour disorder [Unknown]

NARRATIVE: CASE EVENT DATE: 20120403
